FAERS Safety Report 17165371 (Version 1)
Quarter: 2019Q4

REPORT INFORMATION
  Report Type: Report from Study
  Country: CO (occurrence: CO)
  Receive Date: 20191217
  Receipt Date: 20191217
  Transmission Date: 20200122
  Serious: Yes (Hospitalization, Other)
  Sender: FDA-Public Use
  Company Number: CO-JNJFOC-20170519638

PATIENT
  Age: 69 Year
  Sex: Male
  Weight: 80 kg

DRUGS (2)
  1. LEVOTHYROXINE. [Concomitant]
     Active Substance: LEVOTHYROXINE
     Indication: HYPOTHYROIDISM
  2. IMBRUVICA [Suspect]
     Active Substance: IBRUTINIB
     Indication: CHRONIC LYMPHOCYTIC LEUKAEMIA
     Route: 048
     Dates: start: 20160314

REACTIONS (5)
  - Subcutaneous abscess [Not Recovered/Not Resolved]
  - Ecchymosis [Not Recovered/Not Resolved]
  - Oral herpes [Recovered/Resolved]
  - Laboratory test abnormal [Not Recovered/Not Resolved]
  - Abscess oral [Unknown]

NARRATIVE: CASE EVENT DATE: 20160328
